FAERS Safety Report 10974697 (Version 1)
Quarter: 2015Q1

REPORT INFORMATION
  Report Type: Spontaneous
  Country: US (occurrence: None)
  Receive Date: 20150226
  Receipt Date: 20150226
  Transmission Date: 20150721
  Serious: Yes (Life-Threatening, Hospitalization)
  Sender: FDA-Public Use
  Company Number: TPA2009A01292

PATIENT
  Age: 68 Year
  Sex: Male
  Weight: 124.7 kg

DRUGS (14)
  1. ULORIC [Suspect]
     Active Substance: FEBUXOSTAT
     Indication: HYPERURICAEMIA
     Route: 048
     Dates: start: 20090329, end: 20090427
  2. FOLIC ACID (FOLIC ACID) [Concomitant]
     Active Substance: FOLIC ACID
  3. TAMSULOSIN HCI (TAMSULOSIN HYDROCHLORIDE) [Concomitant]
  4. WARFARIN (WARFARIN) [Concomitant]
     Active Substance: WARFARIN
  5. AMMONIUM LACTATE 12% LOTION (AMONIUM LACTATE) [Concomitant]
  6. FINASTERIDE (FINASTERIDE) [Concomitant]
     Active Substance: FINASTERIDE
  7. POVIDONE-IODINE (POVIDONE-IODINE) [Concomitant]
  8. SODIUM CHLORIDE IRRIGATION (SODIUM CHLORIDE) [Concomitant]
  9. HYDROCODONE W/ACETAMINOPHEN (PARACETAMOL, HYDROCODONE BITARTRATE) [Concomitant]
  10. COLLAGENASE (COLLAGENASE) [Concomitant]
  11. HUMAN INSULIN (INSULIN HUMAN) [Concomitant]
  12. MINOCYCLINE HCL (MINOCYCLINE HYDROCHLORIDE) [Concomitant]
  13. GABAPENTIN (GABAPENTIN) [Concomitant]
     Active Substance: GABAPENTIN
  14. OMEPRAZOLE (OMEPRAZOLE) [Concomitant]
     Active Substance: OMEPRAZOLE

REACTIONS (1)
  - Weight increased [None]

NARRATIVE: CASE EVENT DATE: 20090330
